FAERS Safety Report 13618655 (Version 3)
Quarter: 2017Q3

REPORT INFORMATION
  Report Type: Spontaneous
  Country: JP (occurrence: JP)
  Receive Date: 20170606
  Receipt Date: 20170703
  Transmission Date: 20171127
  Serious: Yes (Hospitalization)
  Sender: FDA-Public Use
  Company Number: JP-BAYER-2017-100385

PATIENT
  Age: 84 Year
  Sex: Male

DRUGS (4)
  1. HEPARIN [Suspect]
     Active Substance: HEPARIN SODIUM
     Indication: THROMBOSIS PROPHYLAXIS
     Dosage: DAILY DOSE 7500 U
     Route: 041
     Dates: start: 20160419, end: 20160422
  2. MINOCYCLINE HYDROCHLORIDE. [Concomitant]
     Active Substance: MINOCYCLINE HYDROCHLORIDE
     Indication: JAPANESE SPOTTED FEVER
     Dosage: 100 MG, BID
     Route: 041
     Dates: start: 20160418, end: 20160427
  3. HEPARIN [Suspect]
     Active Substance: HEPARIN SODIUM
     Indication: JAPANESE SPOTTED FEVER
  4. CIPROXAN-I.V.300 [Suspect]
     Active Substance: CIPROFLOXACIN
     Indication: JAPANESE SPOTTED FEVER
     Dosage: 300 MG, QD
     Route: 041
     Dates: start: 20160418, end: 20160423

REACTIONS (2)
  - Arterial haemorrhage [None]
  - Muscle haemorrhage [Recovered/Resolved]

NARRATIVE: CASE EVENT DATE: 20160424
